FAERS Safety Report 10049172 (Version 1)
Quarter: 2014Q2

REPORT INFORMATION
  Report Type: Report from Study
  Country: US (occurrence: US)
  Receive Date: 20140401
  Receipt Date: 20140401
  Transmission Date: 20141212
  Serious: Yes (Other)
  Sender: FDA-Public Use
  Company Number: US-ROCHE-1371043

PATIENT
  Age: 10 Year
  Sex: Male
  Weight: 28.7 kg

DRUGS (2)
  1. NUTROPIN AQ [Suspect]
     Indication: BODY HEIGHT BELOW NORMAL
     Route: 058
  2. CLARITIN [Concomitant]
     Route: 048

REACTIONS (3)
  - Conjunctivitis [Unknown]
  - Iron deficiency anaemia [Unknown]
  - Constipation [Unknown]
